FAERS Safety Report 22362468 (Version 2)
Quarter: 2023Q2

REPORT INFORMATION
  Report Type: Spontaneous
  Country: IT (occurrence: IT)
  Receive Date: 20230524
  Receipt Date: 20230531
  Transmission Date: 20230722
  Serious: Yes (Hospitalization)
  Sender: FDA-Public Use
  Company Number: IT-JNJFOC-20230538287

PATIENT
  Age: 51 Year
  Sex: Male
  Weight: 93 kg

DRUGS (4)
  1. TOPAMAX [Suspect]
     Active Substance: TOPIRAMATE
     Indication: Epilepsy
     Route: 048
  2. LEVOTHYROXINE [Concomitant]
     Active Substance: LEVOTHYROXINE
  3. OXCARBAZEPINE [Concomitant]
     Active Substance: OXCARBAZEPINE
  4. CLOBAZAM [Concomitant]
     Active Substance: CLOBAZAM

REACTIONS (1)
  - Toxicity to various agents [Unknown]
